FAERS Safety Report 8373936-7 (Version None)
Quarter: 2012Q2

REPORT INFORMATION
  Report Type: 
  Country: None (occurrence: None)
  Receive Date: 20120521
  Receipt Date: 20120508
  Transmission Date: 20120825
  Serious: Yes (Life-Threatening, Hospitalization)
  Sender: FDA-Public Use
  Company Number: NO-TEVA-336994ISR

PATIENT
  Age: 48 Year
  Sex: Female

DRUGS (5)
  1. TENORMIN [Concomitant]
     Indication: ANGINA PECTORIS
     Route: 048
  2. NEXIUM [Concomitant]
     Indication: GASTROOESOPHAGEAL REFLUX DISEASE
     Route: 048
  3. VENLAFAXINE [Suspect]
     Indication: DEPRESSION
     Route: 048
     Dates: end: 20120413
  4. INSULATARD PENFILL [Concomitant]
     Indication: TYPE 1 DIABETES MELLITUS
     Dosage: 38 + 26 E DAILY
     Route: 058
  5. NOZINAN [Interacting]
     Dosage: VESPERE
     Route: 048

REACTIONS (4)
  - VENTRICULAR TACHYCARDIA [None]
  - DRUG INTERACTION [None]
  - CARDIAC ARREST [None]
  - TORSADE DE POINTES [None]
